FAERS Safety Report 6074704-1 (Version None)
Quarter: 2009Q1

REPORT INFORMATION
  Report Type: 
  Country: None (occurrence: None)
  Receive Date: 20090210
  Receipt Date: 20090210
  Transmission Date: 20090719
  Serious: Yes (Life-Threatening, Other)
  Sender: FDA-Public Use
  Company Number: None

PATIENT
  Sex: Female
  Weight: 88.905 kg

DRUGS (4)
  1. DEPAKOTE ER [Suspect]
     Indication: EPILEPSY
     Dosage: 2000MG/KG 1X/DAY PO
     Route: 048
     Dates: start: 20060517, end: 20081031
  2. LIPITOR [Concomitant]
  3. L-CARNITINE [Concomitant]
  4. . [Concomitant]

REACTIONS (2)
  - PRODUCT QUALITY ISSUE [None]
  - UNEVALUABLE EVENT [None]
